FAERS Safety Report 19999376 (Version 1)
Quarter: 2021Q4

REPORT INFORMATION
  Report Type: Spontaneous
  Country: KR (occurrence: KR)
  Receive Date: 20211027
  Receipt Date: 20211027
  Transmission Date: 20220303
  Serious: Yes (Hospitalization, Other)
  Sender: FDA-Public Use
  Company Number: KR-KYOWAKIRIN-2021AKK017680

PATIENT
  Age: 41 Year
  Sex: Female

DRUGS (12)
  1. FILGRASTIM [Suspect]
     Active Substance: FILGRASTIM
     Indication: Product used for unknown indication
     Dosage: UNK
     Route: 065
     Dates: start: 20131106, end: 20131109
  2. FILGRASTIM [Suspect]
     Active Substance: FILGRASTIM
     Dosage: UNK
     Route: 065
     Dates: start: 20131125, end: 20131125
  3. FILGRASTIM [Suspect]
     Active Substance: FILGRASTIM
     Dosage: UNK
     Route: 065
     Dates: start: 20131203, end: 20131206
  4. FILGRASTIM [Suspect]
     Active Substance: FILGRASTIM
     Dosage: UNK
     Route: 042
     Dates: start: 20140102, end: 20140102
  5. FILGRASTIM [Suspect]
     Active Substance: FILGRASTIM
     Dosage: UNK
     Route: 042
     Dates: start: 20131125, end: 20131125
  6. ERIBULIN [Suspect]
     Active Substance: ERIBULIN
     Indication: Product used for unknown indication
     Dosage: UNK
     Route: 042
     Dates: start: 20131111, end: 20140106
  7. ERIBULIN [Suspect]
     Active Substance: ERIBULIN
     Dosage: 2.1 MG
     Route: 042
     Dates: start: 20131031, end: 20131031
  8. CEFAZEDONE [Concomitant]
     Active Substance: CEFAZEDONE
     Indication: Product used for unknown indication
     Dosage: 2 G
     Route: 065
     Dates: start: 20131109, end: 20131110
  9. CIMETROPIUM BROMIDE [Concomitant]
     Active Substance: CIMETROPIUM BROMIDE
     Indication: Product used for unknown indication
     Dosage: 5 MG
     Route: 030
     Dates: start: 20140102, end: 20140102
  10. FUROSEMIDE [Concomitant]
     Active Substance: FUROSEMIDE
     Indication: Product used for unknown indication
     Dosage: 40 MG
     Route: 048
     Dates: start: 20131106, end: 20131120
  11. SILYMARIN 100 [Concomitant]
     Indication: Product used for unknown indication
     Dosage: 140 MG
     Route: 048
     Dates: start: 20131107, end: 20131120
  12. SPIRONOLACTONE [Concomitant]
     Active Substance: SPIRONOLACTONE
     Indication: Product used for unknown indication
     Dosage: 25 MG
     Dates: start: 20131106, end: 20131120

REACTIONS (4)
  - Neutropenia [Recovered/Resolved]
  - Neutropenia [Recovered/Resolved]
  - Neutropenia [Recovered/Resolved]
  - Diarrhoea [Recovered/Resolved]

NARRATIVE: CASE EVENT DATE: 20131106
